FAERS Safety Report 18425621 (Version 1)
Quarter: 2020Q4

REPORT INFORMATION
  Report Type: Spontaneous
  Country: US (occurrence: US)
  Receive Date: 20201026
  Receipt Date: 20201026
  Transmission Date: 20210114
  Serious: Yes (Hospitalization)
  Sender: FDA-Public Use
  Company Number: None

PATIENT
  Age: 19 Year
  Sex: Male
  Weight: 93.3 kg

DRUGS (6)
  1. METHOTREXATE. [Suspect]
     Active Substance: METHOTREXATE
     Dates: end: 20201021
  2. CYCLOPHOSPHAMIDE. [Suspect]
     Active Substance: CYCLOPHOSPHAMIDE
     Dates: end: 20201007
  3. ONCASPAR [Suspect]
     Active Substance: PEGASPARGASE
     Dates: end: 20201021
  4. MERCAPTOPURINE. [Suspect]
     Active Substance: MERCAPTOPURINE
     Dates: end: 20201020
  5. CYTARABINE. [Suspect]
     Active Substance: CYTARABINE
  6. VINCRISTINE SULFATE. [Suspect]
     Active Substance: VINCRISTINE SULFATE
     Dates: end: 20201021

REACTIONS (8)
  - NIH stroke scale abnormal [None]
  - Vertebral artery dissection [None]
  - Ataxia [None]
  - Hemiparesis [None]
  - Facial paralysis [None]
  - Ischaemic stroke [None]
  - Dysarthria [None]
  - Muscular weakness [None]

NARRATIVE: CASE EVENT DATE: 20201022
